FAERS Safety Report 4667905-8 (Version None)
Quarter: 2005Q2

REPORT INFORMATION
  Report Type: 
  Country: None (occurrence: None)
  Receive Date: 20050520
  Receipt Date: 20050510
  Transmission Date: 20051028
  Serious: Yes (Death)
  Sender: FDA-Public Use
  Company Number: US-JNJFOC-20041105220

PATIENT
  Sex: Male
  Weight: 9.98 kg

DRUGS (2)
  1. TYLENOL [Suspect]
     Route: 049
  2. TYLENOL [Suspect]
     Route: 049

REACTIONS (3)
  - ACCIDENTAL OVERDOSE [None]
  - DRUG TOXICITY [None]
  - HEPATIC NECROSIS [None]
